FAERS Safety Report 7950798-0 (Version None)
Quarter: 2011Q4

REPORT INFORMATION
  Report Type: 
  Country: None (occurrence: None)
  Receive Date: 20111201
  Receipt Date: 20111128
  Transmission Date: 20120403
  Serious: No
  Sender: FDA-Public Use
  Company Number: US-PFIZER INC-2011290364

PATIENT
  Sex: Male

DRUGS (2)
  1. IBUPROFEN (ADVIL) [Suspect]
     Indication: PAIN
  2. IBUPROFEN (ADVIL) [Suspect]
     Indication: PAIN IN EXTREMITY
     Dosage: 200 MG, 3X/DAY
     Route: 048
     Dates: start: 20111103, end: 20111125

REACTIONS (1)
  - PRURITUS [None]
